FAERS Safety Report 10073021 (Version 3)
Quarter: 2014Q2

REPORT INFORMATION
  Report Type: Report from Study
  Country: US (occurrence: US)
  Receive Date: 20140411
  Receipt Date: 20140603
  Transmission Date: 20141212
  Serious: Yes (Other)
  Sender: FDA-Public Use
  Company Number: US-PURDUE-USA-2014-0112779

PATIENT
  Sex: Female

DRUGS (4)
  1. OXY CR TAB [Suspect]
     Indication: BACK PAIN
     Dosage: 160 MG, BID
     Route: 048
     Dates: start: 20140418
  2. OXY CR TAB [Suspect]
     Dosage: 160 MG, BID
     Route: 048
  3. OXY CR TAB [Suspect]
     Dosage: UNK
     Route: 048
     Dates: start: 1990
  4. PREDNISONE [Suspect]
     Indication: PRODUCT USED FOR UNKNOWN INDICATION
     Dosage: UNK
     Dates: start: 1990

REACTIONS (6)
  - Ankle fracture [Unknown]
  - Spinal fracture [Unknown]
  - Rib fracture [Unknown]
  - Fall [Recovered/Resolved]
  - Osteoporosis [Unknown]
  - Cough [Unknown]
